FAERS Safety Report 6381841-0 (Version None)
Quarter: 2009Q3

REPORT INFORMATION
  Report Type: 
  Country: None (occurrence: None)
  Receive Date: 20090930
  Receipt Date: 20090923
  Transmission Date: 20100115
  Serious: Yes (Hospitalization)
  Sender: FDA-Public Use
  Company Number: FR-JNJFOC-20090906909

PATIENT
  Sex: Female

DRUGS (9)
  1. DURAGESIC-100 [Suspect]
     Indication: PAIN IN EXTREMITY
     Route: 062
     Dates: start: 20090213, end: 20090804
  2. RISPERDAL [Suspect]
     Indication: PAIN IN EXTREMITY
     Route: 048
     Dates: start: 20090327, end: 20090804
  3. LAROXYL ROCHE [Interacting]
     Indication: PAIN IN EXTREMITY
     Route: 048
  4. ACTISKENAN [Interacting]
     Indication: PAIN IN EXTREMITY
     Route: 048
  5. KARDEGIC [Concomitant]
     Indication: DRUG USE FOR UNKNOWN INDICATION
     Route: 048
  6. IBUPROFENE [Concomitant]
     Indication: PAIN IN EXTREMITY
     Route: 048
  7. FORLAX [Concomitant]
     Indication: CONSTIPATION
     Route: 048
  8. AUGMENTIN [Concomitant]
     Indication: LYMPHANGITIS
     Route: 048
  9. CELLUVISC [Concomitant]
     Indication: DRUG USE FOR UNKNOWN INDICATION
     Route: 047

REACTIONS (4)
  - DISTURBANCE IN ATTENTION [None]
  - DRUG INTERACTION [None]
  - GLASGOW COMA SCALE ABNORMAL [None]
  - HALLUCINATION [None]
